FAERS Safety Report 21058134 (Version 2)
Quarter: 2022Q3

REPORT INFORMATION
  Report Type: Spontaneous
  Country: DE (occurrence: DE)
  Receive Date: 20220708
  Receipt Date: 20220714
  Transmission Date: 20221026
  Serious: Yes (Death)
  Sender: FDA-Public Use
  Company Number: DE-SAMSUNG BIOEPIS-SB-2022-16422

PATIENT

DRUGS (4)
  1. TRASTUZUMAB [Suspect]
     Active Substance: TRASTUZUMAB
     Indication: Oesophageal adenocarcinoma
     Dosage: LOADING DOSE
     Route: 065
  2. TRASTUZUMAB [Suspect]
     Active Substance: TRASTUZUMAB
     Route: 042
  3. NIVOLUMAB [Suspect]
     Active Substance: NIVOLUMAB
     Indication: Oesophageal adenocarcinoma
     Route: 065
  4. FLUOROURACIL\LEUCOVORIN\OXALIPLATIN [Suspect]
     Active Substance: FLUOROURACIL\LEUCOVORIN\OXALIPLATIN
     Indication: Oesophageal adenocarcinoma
     Dosage: UNKNOWN/ (OXALIPLATIN, 85 MG/M2, FLUOROURACIL, 400 MG/M2 BOLUS, FOLINIC ACID, 400 MG/M2, AND FLUOROU
     Route: 065

REACTIONS (2)
  - Tumour lysis syndrome [Fatal]
  - Off label use [Unknown]
